FAERS Safety Report 7263699-0 (Version None)
Quarter: 2011Q1

REPORT INFORMATION
  Report Type: 
  Country: None (occurrence: None)
  Receive Date: 20110130
  Receipt Date: 20101206
  Transmission Date: 20110831
  Serious: No
  Sender: FDA-Public Use
  Company Number: US-ABBOTT-10P-163-0689767-00

PATIENT
  Age: 45 Year
  Sex: Female

DRUGS (9)
  1. TYLENOL WITH CODEIN #3 [Concomitant]
     Indication: PAIN
     Dosage: 1 - 2 Q4-6 HR
  2. MAGNESIUM OXIDE [Concomitant]
     Indication: PRODUCT USED FOR UNKNOWN INDICATION
  3. ANTIBIOTICS UNKNOWN NAME [Concomitant]
     Indication: URINARY TRACT INFECTION
  4. MULTI-VITAMIN [Concomitant]
     Indication: PRODUCT USED FOR UNKNOWN INDICATION
     Dosage: OTC MULTIVITAMIN FOR IRON
  5. HUMIRA [Suspect]
     Indication: PSORIASIS
     Dates: start: 20101028
  6. HYDROXYZINE [Concomitant]
     Indication: PRURITUS
     Dosage: 1 - 3
     Route: 048
  7. A PATCH TO STOP SMOKING [Concomitant]
     Indication: EX-TOBACCO USER
     Dosage: PATCH
  8. CYCLOSPORINE [Concomitant]
     Indication: PRODUCT USED FOR UNKNOWN INDICATION
     Dosage: ALTERNATING 1 THEN 2 PILLS QD
  9. POTASSIUM CL CR20 [Concomitant]
     Indication: PRODUCT USED FOR UNKNOWN INDICATION

REACTIONS (5)
  - MENORRHAGIA [None]
  - COAGULOPATHY [None]
  - DYSMENORRHOEA [None]
  - MENSTRUAL DISORDER [None]
  - METRORRHAGIA [None]
